FAERS Safety Report 12370545 (Version 1)
Quarter: 2016Q2

REPORT INFORMATION
  Report Type: Spontaneous
  Country: US (occurrence: None)
  Receive Date: 20160513
  Receipt Date: 20160513
  Transmission Date: 20160815
  Serious: No
  Sender: FDA-Public Use
  Company Number: None

PATIENT
  Age: 63 Year
  Sex: Male
  Weight: 73.4 kg

DRUGS (1)
  1. DIVALPROEX [Suspect]
     Active Substance: DIVALPROEX SODIUM
     Indication: SCHIZOPHRENIA
     Dosage: 2500 MG, AT BEDTIME, PO
     Route: 048
     Dates: start: 20070723, end: 20150922

REACTIONS (3)
  - Mental status changes [None]
  - Encephalopathy [None]
  - Hyperammonaemia [None]

NARRATIVE: CASE EVENT DATE: 20150819
